FAERS Safety Report 10248149 (Version 1)
Quarter: 2014Q2

REPORT INFORMATION
  Report Type: Spontaneous
  Country: US (occurrence: US)
  Receive Date: 20140619
  Receipt Date: 20140619
  Transmission Date: 20141212
  Serious: Yes (Other)
  Sender: FDA-Public Use
  Company Number: US-ABBVIE-14P-163-1247246-00

PATIENT
  Age: 87 Year
  Sex: Female

DRUGS (3)
  1. VICODIN [Suspect]
     Indication: PRODUCT USED FOR UNKNOWN INDICATION
  2. VOLTAREN [Suspect]
     Indication: RHEUMATOID ARTHRITIS
     Dosage: MORE THAN THE DOSING CARD SAYS
     Route: 061
  3. VOLTAREN [Suspect]
     Indication: OFF LABEL USE

REACTIONS (8)
  - Intentional product misuse [Unknown]
  - Wrong technique in drug usage process [Unknown]
  - Off label use [Unknown]
  - Therapeutic response changed [Unknown]
  - Cataract [Unknown]
  - Rheumatoid arthritis [Unknown]
  - Myocardial infarction [Recovered/Resolved]
  - Visual acuity reduced [Unknown]
